FAERS Safety Report 4962390-0 (Version None)
Quarter: 2006Q2

REPORT INFORMATION
  Report Type: 
  Country: None (occurrence: None)
  Receive Date: 20060403
  Receipt Date: 20060403
  Transmission Date: 20061013
  Serious: No
  Sender: FDA-Public Use
  Company Number: None

PATIENT
  Sex: Male
  Weight: 70.3075 kg

DRUGS (5)
  1. TRAMADOL HCL [Suspect]
     Indication: BACK PAIN
     Dosage: 50 MG TID PO
     Route: 048
     Dates: start: 20050927, end: 20050929
  2. HYDROCHLOROTHIAZIDE [Concomitant]
  3. IBUPROFEN [Concomitant]
  4. LORATADINE [Concomitant]
  5. TEMAZEPAM [Concomitant]

REACTIONS (1)
  - SWELLING FACE [None]
